FAERS Safety Report 7415226-2 (Version None)
Quarter: 2011Q2

REPORT INFORMATION
  Report Type: 
  Country: None (occurrence: None)
  Receive Date: 20110414
  Receipt Date: 20110411
  Transmission Date: 20111010
  Serious: Yes (Death)
  Sender: FDA-Public Use
  Company Number: PHHY2011CA23175

PATIENT
  Sex: Female
  Weight: 58.503 kg

DRUGS (1)
  1. RIVASTIGMINE [Suspect]
     Dosage: 4.6 MG, UNK
     Route: 062
     Dates: start: 20091215

REACTIONS (1)
  - CHRONIC OBSTRUCTIVE PULMONARY DISEASE [None]
